FAERS Safety Report 19604775 (Version 1)
Quarter: 2021Q3

REPORT INFORMATION
  Report Type: Spontaneous
  Country: CN (occurrence: CN)
  Receive Date: 20210723
  Receipt Date: 20210723
  Transmission Date: 20211014
  Serious: Yes (Hospitalization, Other)
  Sender: FDA-Public Use
  Company Number: CN-ROCHE-2873463

PATIENT
  Age: 58 Year
  Sex: Male

DRUGS (7)
  1. CYCLOPHOSPHAMIDE. [Concomitant]
     Active Substance: CYCLOPHOSPHAMIDE
     Indication: DIFFUSE LARGE B-CELL LYMPHOMA
     Dosage: 29/AUG/2018, 18/SEP/2018, 22/OCT/2018, 21/NOV/2018, 25/DEC/2018, 24/JAN/2019: DAY1 R?MINICHOP
     Route: 065
  2. EPIRUBICIN [Concomitant]
     Active Substance: EPIRUBICIN
     Indication: DIFFUSE LARGE B-CELL LYMPHOMA
     Dosage: 29/AUG/2018, 18/SEP/2018, 22/OCT/2018, 21/NOV/2018, 25/DEC/2018, 24/JAN/2019: 60MG DAY1, 50MG DAY2;
     Route: 065
  3. DEXAMETHASONE. [Concomitant]
     Active Substance: DEXAMETHASONE
     Indication: DIFFUSE LARGE B-CELL LYMPHOMA
  4. RITUXIMAB. [Suspect]
     Active Substance: RITUXIMAB
     Indication: DIFFUSE LARGE B-CELL LYMPHOMA
     Dosage: 29/AUG/2018, 18/SEP/2018, 22/OCT/2018, 21/NOV/2018, 25/DEC/2018, 24/JAN/2019: DAY0 R?MINICHOP
     Route: 065
  5. EPIRUBICIN [Concomitant]
     Active Substance: EPIRUBICIN
     Route: 065
  6. PREDNISONE. [Concomitant]
     Active Substance: PREDNISONE
     Indication: DIFFUSE LARGE B-CELL LYMPHOMA
     Dosage: 29/AUG/2018, 18/SEP/2018, 22/OCT/2018, 21/NOV/2018, 25/DEC/2018, 24/JAN/2019: DAY1?5; R?MINICHOP
  7. ENTECAVIR. [Concomitant]
     Active Substance: ENTECAVIR
     Indication: HEPATITIS B
     Dosage: DF MEANS TABLET, PER DAY

REACTIONS (3)
  - Myelosuppression [Unknown]
  - Pneumonia [Unknown]
  - Disease recurrence [Unknown]
